FAERS Safety Report 9858753 (Version 2)
Quarter: 2014Q1

REPORT INFORMATION
  Report Type: Spontaneous
  Country: GB (occurrence: GB)
  Receive Date: 20140131
  Receipt Date: 20140131
  Transmission Date: 20141002
  Serious: Yes (Other)
  Sender: FDA-Public Use
  Company Number: GB-009507513-1401GBR004620

PATIENT
  Age: 18 Year
  Sex: Female
  Weight: 87.6 kg

DRUGS (1)
  1. NEXPLANON [Suspect]
     Dosage: UNK
     Route: 059
     Dates: start: 20100124, end: 20140109

REACTIONS (5)
  - Neurostimulator implantation [Unknown]
  - Implant site pruritus [Unknown]
  - Device breakage [Recovered/Resolved]
  - Device difficult to use [Recovered/Resolved]
  - Incorrect drug administration duration [Unknown]
